FAERS Safety Report 9215100 (Version 3)
Quarter: 2013Q2

REPORT INFORMATION
  Report Type: Report from Study
  Country: FR (occurrence: FR)
  Receive Date: 20130405
  Receipt Date: 20130418
  Transmission Date: 20140414
  Serious: Yes (Hospitalization, Other)
  Sender: FDA-Public Use
  Company Number: FR-PFIZER INC-2013104967

PATIENT
  Age: 44 Year
  Sex: Male
  Weight: 179 kg

DRUGS (2)
  1. TORISEL [Suspect]
     Indication: MANTLE CELL LYMPHOMA RECURRENT
     Dosage: 175 MG, WEEKLY
     Dates: start: 20110802, end: 20110817
  2. TORISEL [Suspect]
     Dosage: 75 MG, WEEKLY
     Dates: start: 20110824, end: 20110913

REACTIONS (4)
  - Pancytopenia [Unknown]
  - Anaemia [Unknown]
  - Diarrhoea [Unknown]
  - Melaena [Unknown]
